FAERS Safety Report 7085141-5 (Version None)
Quarter: 2010Q4

REPORT INFORMATION
  Report Type: 
  Country: None (occurrence: None)
  Receive Date: 20101018
  Receipt Date: 20100930
  Transmission Date: 20110411
  Serious: Yes (Hospitalization)
  Sender: FDA-Public Use
  Company Number: GAM-283-10-FR

PATIENT
  Age: 63 Year
  Sex: Female

DRUGS (1)
  1. OCTAGAM [Suspect]
     Indication: SELECTIVE IGG SUBCLASS DEFICIENCY
     Dosage: 12 G I.V.
     Route: 042
     Dates: start: 20100512, end: 20100602

REACTIONS (4)
  - HYPOXIA [None]
  - LUNG DISORDER [None]
  - PNEUMONIA [None]
  - STREPTOCOCCUS TEST POSITIVE [None]
